FAERS Safety Report 18270116 (Version 6)
Quarter: 2022Q2

REPORT INFORMATION
  Report Type: Report from Study
  Country: CA (occurrence: CA)
  Receive Date: 20200916
  Receipt Date: 20220602
  Transmission Date: 20220721
  Serious: Yes (Hospitalization, Other)
  Sender: FDA-Public Use
  Company Number: CA-SAMSUNG BIOEPIS-SB-2020-28508

PATIENT
  Age: 38 Year
  Sex: Female

DRUGS (4)
  1. ETANERCEPT [Suspect]
     Active Substance: ETANERCEPT
     Indication: Rheumatoid arthritis
     Dosage: 50 MG/ML
     Route: 058
     Dates: start: 20190822
  2. ETANERCEPT [Suspect]
     Active Substance: ETANERCEPT
     Dosage: UNKNOWN
     Route: 065
  3. PLAQUENIL [Concomitant]
     Active Substance: HYDROXYCHLOROQUINE SULFATE
     Indication: Rheumatoid arthritis
     Dosage: UNKNOWN
     Route: 065
     Dates: start: 20190822
  4. PLAQUENIL [Concomitant]
     Active Substance: HYDROXYCHLOROQUINE SULFATE
     Indication: Rheumatoid arthritis

REACTIONS (5)
  - Status migrainosus [Not Recovered/Not Resolved]
  - Encephalitis viral [Unknown]
  - Cerebral haemorrhage [Unknown]
  - Cerebrospinal fluid leakage [Unknown]
  - Delirium [Not Recovered/Not Resolved]
